FAERS Safety Report 15809178 (Version 1)
Quarter: 2019Q1

REPORT INFORMATION
  Report Type: Other
  Country: US (occurrence: US)
  Receive Date: 20190110
  Receipt Date: 20190110
  Transmission Date: 20190417
  Serious: Yes (Hospitalization)
  Sender: FDA-Public Use
  Company Number: US-SERVIER PHARMACEUTICALS LLC-2061075

PATIENT
  Age: 13 Year
  Sex: Male

DRUGS (4)
  1. ONCASPAR [Suspect]
     Active Substance: PEGASPARGASE
     Indication: ACUTE LYMPHOCYTIC LEUKAEMIA
  2. DEXAMETHASONE. [Suspect]
     Active Substance: DEXAMETHASONE
  3. VINCRISTINE SULFATE. [Suspect]
     Active Substance: VINCRISTINE SULFATE
  4. DAUNORUBICIN HYDROCHLORIDE. [Suspect]
     Active Substance: DAUNORUBICIN HYDROCHLORIDE

REACTIONS (4)
  - Enteritis [Recovered/Resolved]
  - Gastrointestinal necrosis [Recovered/Resolved]
  - Cytomegalovirus enterocolitis [Recovered/Resolved]
  - Jejunal perforation [Recovered/Resolved]
